FAERS Safety Report 4743070-3 (Version None)
Quarter: 2005Q3

REPORT INFORMATION
  Report Type: 
  Country: None (occurrence: None)
  Receive Date: 20050811
  Receipt Date: 20050809
  Transmission Date: 20060218
  Serious: Yes (Other)
  Sender: FDA-Public Use
  Company Number: GB-MERCK-0508GBR00060

PATIENT
  Age: 85 Year
  Sex: Female
  Weight: 69 kg

DRUGS (12)
  1. FOSAMAX [Suspect]
     Indication: BONE DISORDER
     Route: 048
     Dates: start: 20050613, end: 20050627
  2. AMLODIPINE BESYLATE [Concomitant]
     Route: 065
  3. ASPIRIN [Concomitant]
     Indication: MYOCARDIAL ISCHAEMIA
     Route: 065
  4. BETAHISTINE HYDROCHLORIDE [Concomitant]
     Indication: TINNITUS
     Route: 065
  5. POTASSIUM BICARBONATE AND SODIUM ALGINATE [Concomitant]
     Route: 065
  6. NITROGLYCERIN [Concomitant]
     Indication: MYOCARDIAL ISCHAEMIA
     Route: 055
  7. HYDROXOCOBALAMIN [Concomitant]
     Route: 065
  8. ISOSORBIDE MONONITRATE [Concomitant]
     Indication: MYOCARDIAL ISCHAEMIA
     Route: 065
  9. NICORANDIL [Concomitant]
     Route: 065
  10. ACETAMINOPHEN [Concomitant]
     Indication: ARTHRITIS
     Route: 065
  11. SIMVASTATIN [Concomitant]
     Indication: BLOOD CHOLESTEROL INCREASED
     Route: 065
  12. CAPSAICIN [Concomitant]
     Route: 061

REACTIONS (3)
  - CHILLS [None]
  - HEADACHE [None]
  - PALPITATIONS [None]
